FAERS Safety Report 11024742 (Version 2)
Quarter: 2015Q2

REPORT INFORMATION
  Report Type: Spontaneous
  Country: US (occurrence: None)
  Receive Date: 20150410
  Receipt Date: 20150420
  Transmission Date: 20150821
  Serious: Yes (Other)
  Sender: FDA-Public Use
  Company Number: ADR-2015-00667

PATIENT
  Age: 54 Year
  Sex: Male

DRUGS (3)
  1. MORPHINE INTRATHECAL [Suspect]
     Active Substance: MORPHINE
     Indication: MUSCLE SPASTICITY
  2. BUPIVACAINE INTRATHECAL [Suspect]
     Active Substance: BUPIVACAINE
  3. LIORESAL [Suspect]
     Active Substance: BACLOFEN
     Indication: MUSCLE SPASTICITY

REACTIONS (12)
  - Speech disorder [None]
  - Hip fracture [None]
  - Device issue [None]
  - Quality of life decreased [None]
  - Performance status decreased [None]
  - Fall [None]
  - Asthenia [None]
  - Muscle tightness [None]
  - Pain [None]
  - Device occlusion [None]
  - Muscle spasms [None]
  - Mobility decreased [None]

NARRATIVE: CASE EVENT DATE: 20150215
